FAERS Safety Report 10687914 (Version 1)
Quarter: 2014Q4

REPORT INFORMATION
  Report Type: Spontaneous
  Country: US (occurrence: None)
  Receive Date: 20141231
  Receipt Date: 20141231
  Transmission Date: 20150529
  Serious: Yes (Hospitalization)
  Sender: FDA-Public Use
  Company Number: None

PATIENT
  Age: 80 Year
  Sex: Male
  Weight: 90 kg

DRUGS (10)
  1. XARELTO [Suspect]
     Active Substance: RIVAROXABAN
     Indication: ATRIAL FIBRILLATION
     Route: 048
  2. ALFUZOSIN [Concomitant]
     Active Substance: ALFUZOSIN
  3. TORSEMIDE. [Concomitant]
     Active Substance: TORSEMIDE
  4. SPIRONOLACTONE. [Concomitant]
     Active Substance: SPIRONOLACTONE
  5. CARVEDILOL. [Concomitant]
     Active Substance: CARVEDILOL
  6. LOSARTAN [Concomitant]
     Active Substance: LOSARTAN
  7. DIGOXIN. [Concomitant]
     Active Substance: DIGOXIN
  8. LEVOTHYROXINE [Concomitant]
     Active Substance: LEVOTHYROXINE
  9. INSULIN DETEMIR [Concomitant]
     Active Substance: INSULIN DETEMIR
  10. GLIMEPIRIDE. [Concomitant]
     Active Substance: GLIMEPIRIDE

REACTIONS (2)
  - Muscle spasms [None]
  - Cerebral haemorrhage [None]

NARRATIVE: CASE EVENT DATE: 20141229
